FAERS Safety Report 5142568-6 (Version None)
Quarter: 2006Q4

REPORT INFORMATION
  Report Type: 
  Country: None (occurrence: None)
  Receive Date: 20061031
  Receipt Date: 20061031
  Transmission Date: 20070319
  Serious: Yes (Hospitalization)
  Sender: FDA-Public Use
  Company Number: None

PATIENT
  Sex: Female
  Weight: 54.6 kg

DRUGS (21)
  1. CETUXIMAB, 250 MG/M2, BRISTOL MYERS SQUIBB [Suspect]
     Indication: CERVIX CARCINOMA
     Dosage: 392 MG ONCE EACH WEEK IV
     Route: 042
     Dates: start: 20060907
  2. CETUXIMAB, 250 MG/M2, BRISTOL MYERS SQUIBB [Suspect]
     Indication: CERVIX CARCINOMA
     Dosage: 392 MG ONCE EACH WEEK IV
     Route: 042
     Dates: start: 20060914
  3. CETUXIMAB, 250 MG/M2, BRISTOL MYERS SQUIBB [Suspect]
     Indication: CERVIX CARCINOMA
     Dosage: 392 MG ONCE EACH WEEK IV
     Route: 042
     Dates: start: 20060921
  4. CETUXIMAB, 250 MG/M2, BRISTOL MYERS SQUIBB [Suspect]
     Indication: CERVIX CARCINOMA
     Dosage: 380 MG ONCE EACH WEEK IV
     Route: 042
     Dates: start: 20060928
  5. CETUXIMAB, 250 MG/M2, BRISTOL MYERS SQUIBB [Suspect]
     Indication: CERVIX CARCINOMA
     Dosage: 380 MG ONCE EACH WEEK IV
     Route: 042
     Dates: start: 20061005
  6. OXYCODONE HCL [Concomitant]
  7. OXYCODONE HCL [Concomitant]
  8. GABAPENTIN [Concomitant]
  9. PROMETHAZINE HCL [Concomitant]
  10. TEMAZEPAM [Concomitant]
  11. METOPROLOL TARTRATE [Concomitant]
  12. GLYCERIN SUPPOSITORY [Concomitant]
  13. SENNA [Concomitant]
  14. FAMOTIDINE [Concomitant]
  15. POLYETHYLENE GLYCOL [Concomitant]
  16. DOXYCYCLINE [Concomitant]
  17. CLINDAMYCIN [Concomitant]
  18. LORAZEPAM [Concomitant]
  19. DIPHENOXYLATE HYDROCHLORIDE WITH ATROPINE SULFATE [Concomitant]
  20. CASTOR OIL/PERU BALSAM/TRYPSIN OINTMENT [Concomitant]
  21. ALUMINUM W/MAGNESIUM HYDROXIDE/NYSTATIN/DIPHENHYDRAMINE [Concomitant]

REACTIONS (3)
  - DIARRHOEA [None]
  - FEEDING TUBE COMPLICATION [None]
  - ORAL INTAKE REDUCED [None]
